FAERS Safety Report 8050112-9 (Version None)
Quarter: 2012Q1

REPORT INFORMATION
  Report Type: 
  Country: None (occurrence: None)
  Receive Date: 20120117
  Receipt Date: 20120110
  Transmission Date: 20120608
  Serious: Yes (Other)
  Sender: FDA-Public Use
  Company Number: GB-MERCK-1201GBR00029

PATIENT
  Age: 68 Year
  Sex: Female
  Weight: 73 kg

DRUGS (12)
  1. ATORVASTATIN [Concomitant]
     Route: 065
  2. JANUVIA [Suspect]
     Indication: DIABETES MELLITUS
     Route: 048
  3. SODIUM PIDOLATE [Concomitant]
     Route: 065
  4. NEBIVOLOL [Concomitant]
     Route: 065
  5. LATANOPROST [Concomitant]
     Route: 047
  6. RANITIDINE [Concomitant]
     Route: 065
  7. DIGOXIN [Concomitant]
     Route: 065
  8. INFLUENZA VIRUS SAG 3V VACCINE INACTIVATED [Concomitant]
     Indication: ANTIVIRAL PROPHYLAXIS
     Route: 030
  9. SPIRONOLACTONE [Concomitant]
     Route: 065
  10. FUROSEMIDE [Concomitant]
     Route: 065
  11. VALSARTAN [Concomitant]
     Route: 065
  12. WARFARIN [Concomitant]
     Route: 065

REACTIONS (3)
  - DIZZINESS [None]
  - OEDEMA MOUTH [None]
  - CHAPPED LIPS [None]
